FAERS Safety Report 4340308-1 (Version None)
Quarter: 2004Q2

REPORT INFORMATION
  Report Type: 
  Country: None (occurrence: None)
  Receive Date: 20040409
  Receipt Date: 20040324
  Transmission Date: 20050107
  Serious: Yes (Life-Threatening)
  Sender: FDA-Public Use
  Company Number: SAGL-ZLB/04/08/BEL

PATIENT
  Age: 75 Year
  Sex: Male
  Weight: 75 kg

DRUGS (1)
  1. SANDOGLOBULIN [Suspect]
     Dosage: I.V.
     Route: 042

REACTIONS (3)
  - CHILLS [None]
  - DYSPNOEA [None]
  - LOSS OF CONSCIOUSNESS [None]
